FAERS Safety Report 23580221 (Version 1)
Quarter: 2024Q1

REPORT INFORMATION
  Report Type: Spontaneous
  Country: US (occurrence: US)
  Receive Date: 20240229
  Receipt Date: 20240229
  Transmission Date: 20240410
  Serious: No
  Sender: FDA-Public Use
  Company Number: MIQ-03282023-4084

PATIENT

DRUGS (1)
  1. ONZETRA XSAIL [Suspect]
     Active Substance: SUMATRIPTAN SUCCINATE
     Indication: Migraine
     Dosage: 2 DOSAGE FORM
     Route: 045
     Dates: start: 2022

REACTIONS (3)
  - Inadequate analgesia [Unknown]
  - Incorrect dose administered by device [Unknown]
  - Product packaging quantity issue [Unknown]
